FAERS Safety Report 6111242-1 (Version None)
Quarter: 2009Q1

REPORT INFORMATION
  Report Type: 
  Country: None (occurrence: None)
  Receive Date: 20090311
  Receipt Date: 20090309
  Transmission Date: 20090719
  Serious: Yes (Death, Disabling)
  Sender: FDA-Public Use
  Company Number: PHHY2009FR08517

PATIENT

DRUGS (2)
  1. ZOMETA [Suspect]
     Dosage: 1 PERFUSION EVERY 3 WEEKS
     Route: 042
     Dates: start: 20030124, end: 20070101
  2. LYTOS [Concomitant]
     Dosage: UNK
     Dates: start: 20070301

REACTIONS (3)
  - DEATH [None]
  - OSTEONECROSIS [None]
  - SURGERY [None]
